FAERS Safety Report 4600154-8 (Version None)
Quarter: 2005Q1

REPORT INFORMATION
  Report Type: 
  Country: None (occurrence: None)
  Receive Date: 20050307
  Receipt Date: 20041118
  Transmission Date: 20050727
  Serious: Yes (Other)
  Sender: FDA-Public Use
  Company Number: JP-ROCHE-386774

PATIENT
  Age: 55 Year
  Sex: Female

DRUGS (5)
  1. PEG-INTERFERON A-2A (RO 25-8310) [Suspect]
     Indication: HEPATITIS C
     Route: 058
     Dates: start: 20040624, end: 20041014
  2. PEG-INTERFERON A-2A (RO 25-8310) [Suspect]
     Route: 058
     Dates: start: 20041021
  3. TAKEPRON [Concomitant]
     Route: 048
     Dates: start: 20040909, end: 20041103
  4. URSO 250 [Concomitant]
     Route: 048
     Dates: start: 20040921
  5. ACINON [Concomitant]
     Route: 048
     Dates: start: 20041104

REACTIONS (4)
  - CERVIX CARCINOMA [None]
  - GENITAL HAEMORRHAGE [None]
  - HYPERTENSION [None]
  - MALAISE [None]
